FAERS Safety Report 5480416-5 (Version None)
Quarter: 2007Q4

REPORT INFORMATION
  Report Type: 
  Country: None (occurrence: None)
  Receive Date: 20071004
  Receipt Date: 20071004
  Transmission Date: 20080405
  Serious: Yes (Hospitalization)
  Sender: FDA-Public Use
  Company Number: None

PATIENT
  Sex: Male
  Weight: 70.6 kg

DRUGS (2)
  1. CISPLATIN [Suspect]
     Indication: TONSIL CANCER
     Dosage: 100MG/M2 IV Q4WKS
     Route: 042
     Dates: start: 20070925
  2. CETUXIMAB [Suspect]
     Indication: TONSIL CANCER
     Dosage: 250MG/M2 IV QWK
     Route: 042
     Dates: start: 20070925, end: 20071002

REACTIONS (3)
  - CONFUSIONAL STATE [None]
  - FAILURE TO THRIVE [None]
  - NAUSEA [None]
